FAERS Safety Report 9103980 (Version 1)
Quarter: 2013Q1

REPORT INFORMATION
  Report Type: Spontaneous
  Country: US (occurrence: US)
  Receive Date: 20130219
  Receipt Date: 20130219
  Transmission Date: 20140127
  Serious: No
  Sender: FDA-Public Use
  Company Number: US-PFIZER INC-2013061994

PATIENT
  Sex: 0

DRUGS (2)
  1. PRISTIQ [Suspect]
     Dosage: UNK
  2. DEPO-PROVERA [Suspect]
     Dosage: UNK

REACTIONS (3)
  - Emotional disorder [Unknown]
  - Depressed mood [Unknown]
  - Wrong technique in drug usage process [Unknown]
